FAERS Safety Report 25389851 (Version 1)
Quarter: 2025Q2

REPORT INFORMATION
  Report Type: Spontaneous
  Country: US (occurrence: None)
  Receive Date: 20250602
  Receipt Date: 20250602
  Transmission Date: 20250716
  Serious: No
  Sender: FDA-CTU
  Company Number: None

PATIENT
  Age: 59 Year
  Sex: Female
  Weight: 103.5 kg

DRUGS (3)
  1. METFORMIN HYDROCHLORIDE [Suspect]
     Active Substance: METFORMIN HYDROCHLORIDE
     Indication: Blood glucose increased
     Dosage: FREQUENCY : TWICE A DAY;?
     Route: 048
     Dates: start: 20250222, end: 20250306
  2. METFORMIN HYDROCHLORIDE [Suspect]
     Active Substance: METFORMIN HYDROCHLORIDE
     Indication: Blood glucose increased
     Dosage: FREQUENCY : DAILY;?
     Route: 048
     Dates: start: 20250418, end: 20250424
  3. VITAMINS [Concomitant]
     Active Substance: VITAMINS

REACTIONS (9)
  - Tardive dyskinesia [None]
  - Gastrointestinal disorder [None]
  - Fatigue [None]
  - Brain fog [None]
  - Apathy [None]
  - Depression [None]
  - Feeling of despair [None]
  - Frustration tolerance decreased [None]
  - Eructation [None]

NARRATIVE: CASE EVENT DATE: 20250306
